FAERS Safety Report 18250700 (Version 2)
Quarter: 2020Q4

REPORT INFORMATION
  Report Type: Spontaneous
  Country: BE (occurrence: BE)
  Receive Date: 20200910
  Receipt Date: 20201005
  Transmission Date: 20210113
  Serious: Yes (Other)
  Sender: FDA-Public Use
  Company Number: BE-ROCHE-2672545

PATIENT
  Sex: Female

DRUGS (1)
  1. OCREVUS [Suspect]
     Active Substance: OCRELIZUMAB
     Indication: PRODUCT USED FOR UNKNOWN INDICATION
     Dosage: PATIENT HAD RECEIVED 2 INFUSIONS.
     Route: 042

REACTIONS (7)
  - Pain of skin [Unknown]
  - Abdominal discomfort [Unknown]
  - Head discomfort [Unknown]
  - Oedema peripheral [Unknown]
  - Generalised oedema [Unknown]
  - Multiple sclerosis [Unknown]
  - Oropharyngeal discomfort [Unknown]
